FAERS Safety Report 4896541-3 (Version None)
Quarter: 2006Q1

REPORT INFORMATION
  Report Type: 
  Country: None (occurrence: None)
  Receive Date: 20060131
  Receipt Date: 20060126
  Transmission Date: 20060701
  Serious: Yes (Death, Hospitalization)
  Sender: FDA-Public Use
  Company Number: US-KINGPHARMUSA00001-K200600092

PATIENT
  Sex: Male

DRUGS (2)
  1. ALTACE [Suspect]
     Dosage: 2.5 MG, UNK
  2. HYDROCHLOROTHIAZIDE [Suspect]

REACTIONS (5)
  - ANAPHYLACTOID REACTION [None]
  - CARDIAC ARREST [None]
  - CIRCULATORY COLLAPSE [None]
  - DIALYSIS [None]
  - MYOCARDIAL INFARCTION [None]
